FAERS Safety Report 18329544 (Version 3)
Quarter: 2022Q2

REPORT INFORMATION
  Report Type: Spontaneous
  Country: US (occurrence: US)
  Receive Date: 20200930
  Receipt Date: 20220504
  Transmission Date: 20220721
  Serious: No
  Sender: FDA-Public Use
  Company Number: US-PFIZER INC-2020375940

PATIENT
  Age: 62 Year
  Sex: Female
  Weight: 111.13 kg

DRUGS (1)
  1. PREGABALIN [Suspect]
     Active Substance: PREGABALIN
     Indication: Neuralgia
     Dosage: UNK, 2X/DAY
     Route: 048

REACTIONS (5)
  - Drug hypersensitivity [Unknown]
  - Illness [Unknown]
  - Vomiting [Unknown]
  - Peripheral swelling [Unknown]
  - Nausea [Unknown]
